FAERS Safety Report 8695919 (Version 2)
Quarter: 2013Q4

REPORT INFORMATION
  Report Type: Spontaneous
  Country: US (occurrence: US)
  Receive Date: 20120801
  Receipt Date: 20131101
  Transmission Date: 20140711
  Serious: No
  Sender: FDA-Public Use
  Company Number: US-009507513-2012SP036308

PATIENT
  Sex: Female
  Weight: 77.55 kg

DRUGS (1)
  1. IMPLANON [Suspect]
     Indication: CONTRACEPTION
     Dosage: FOR UP TO THREE YEARS
     Dates: start: 201201

REACTIONS (4)
  - Weight increased [Not Recovered/Not Resolved]
  - Libido decreased [Not Recovered/Not Resolved]
  - Acne [Not Recovered/Not Resolved]
  - Menstrual disorder [Not Recovered/Not Resolved]
